FAERS Safety Report 11681933 (Version 8)
Quarter: 2016Q4

REPORT INFORMATION
  Report Type: Report from Study
  Country: AR (occurrence: AR)
  Receive Date: 20151029
  Receipt Date: 20161205
  Transmission Date: 20170206
  Serious: Yes (Hospitalization, Other)
  Sender: FDA-Public Use
  Company Number: PHHY2015AR125086

PATIENT
  Age: 56 Year
  Sex: Male
  Weight: 74.8 kg

DRUGS (7)
  1. MYFORTIC [Suspect]
     Active Substance: MYCOPHENOLATE SODIUM
     Indication: RENAL TRANSPLANT
     Dosage: 720 MG, BID
     Route: 048
     Dates: start: 20150404, end: 20160314
  2. MYFORTIC [Suspect]
     Active Substance: MYCOPHENOLATE SODIUM
     Indication: PROPHYLAXIS AGAINST TRANSPLANT REJECTION
  3. VANCOMYCIN [Concomitant]
     Active Substance: VANCOMYCIN
     Indication: PRODUCT USED FOR UNKNOWN INDICATION
     Dosage: UNK
     Route: 065
     Dates: start: 20151006
  4. MYFORTIC [Suspect]
     Active Substance: MYCOPHENOLATE SODIUM
     Indication: IMMUNOSUPPRESSANT DRUG THERAPY
     Dosage: HALF DOSE
     Route: 065
  5. TACROLIMUS. [Suspect]
     Active Substance: TACROLIMUS
     Indication: PROPHYLAXIS AGAINST TRANSPLANT REJECTION
     Dosage: 7 MG, UNK
     Route: 065
     Dates: start: 20150404
  6. MEPREDNISONE [Concomitant]
     Active Substance: MEPREDNISONE
     Indication: PROPHYLAXIS AGAINST TRANSPLANT REJECTION
     Dosage: 8 MG, UNK
     Route: 065
     Dates: start: 20150404
  7. TACROLIMUS. [Suspect]
     Active Substance: TACROLIMUS
     Indication: IMMUNOSUPPRESSANT DRUG THERAPY

REACTIONS (17)
  - Leukopenia [Recovered/Resolved]
  - Hyponatraemia [Recovered/Resolved]
  - Urinary tract infection pseudomonal [Recovered/Resolved]
  - Otitis externa [Recovering/Resolving]
  - Immunosuppressant drug level increased [Recovered/Resolved]
  - Anaemia [Recovering/Resolving]
  - Pyrexia [Recovered/Resolved]
  - Otorrhoea [Unknown]
  - Fungal skin infection [Recovered/Resolved]
  - Overdose [Recovering/Resolving]
  - Pyonephrosis [Recovered/Resolved]
  - Staphylococcal bacteraemia [Unknown]
  - Vomiting [Recovered/Resolved]
  - Otitis media [Recovered/Resolved]
  - Pyrexia [Unknown]
  - Hydronephrosis [Unknown]
  - Diarrhoea [Recovered/Resolved]

NARRATIVE: CASE EVENT DATE: 20051103
